FAERS Safety Report 4475969-X (Version None)
Quarter: 2004Q4

REPORT INFORMATION
  Report Type: 
  Country: None (occurrence: None)
  Receive Date: 20041012
  Receipt Date: 20041001
  Transmission Date: 20050328
  Serious: Yes (Other)
  Sender: FDA-Public Use
  Company Number: 2004236642US

PATIENT
  Age: 52 Year
  Sex: Male

DRUGS (8)
  1. LINEZOLID          (LINEZOLID) [Suspect]
     Indication: STAPHYLOCOCCAL INFECTION
     Dosage: 600 MG, DAILY,
  2. FLUCONAZOLE [Concomitant]
  3. POTASSIUM CHLORIDE [Concomitant]
  4. MAGNESIUM OXIDE [Concomitant]
  5. FERROUS SULFATE TAB [Concomitant]
  6. ASPIRIN ENTERIC COATED K.P. [Concomitant]
  7. LANSOPRAZOLE [Concomitant]
  8. GLIMEPIRIDE [Concomitant]

REACTIONS (10)
  - DISEASE RECURRENCE [None]
  - GASTRITIS [None]
  - HEART TRANSPLANT [None]
  - MYELODYSPLASTIC SYNDROME [None]
  - NEPHRITIS INTERSTITIAL [None]
  - RASH GENERALISED [None]
  - RASH MACULO-PAPULAR [None]
  - RENAL FAILURE ACUTE [None]
  - SIDEROBLASTIC ANAEMIA [None]
  - THROMBOCYTOPENIA [None]
